FAERS Safety Report 18143311 (Version 1)
Quarter: 2020Q3

REPORT INFORMATION
  Report Type: Spontaneous
  Country: US (occurrence: US)
  Receive Date: 20200813
  Receipt Date: 20200813
  Transmission Date: 20201103
  Serious: No
  Sender: FDA-Public Use
  Company Number: US-BEH-2020121169

PATIENT
  Sex: Female

DRUGS (1)
  1. HIZENTRA [Suspect]
     Active Substance: HUMAN IMMUNOGLOBULIN G
     Indication: HUMORAL IMMUNE DEFECT
     Dosage: 11 GRAM, EVERY 10 DAYS
     Route: 058
     Dates: start: 20190629

REACTIONS (3)
  - Abdominal distension [Not Recovered/Not Resolved]
  - Product administration error [Unknown]
  - No adverse event [Unknown]
